FAERS Safety Report 15860646 (Version 1)
Quarter: 2019Q1

REPORT INFORMATION
  Report Type: Report from Study
  Country: IT (occurrence: IT)
  Receive Date: 20190124
  Receipt Date: 20190124
  Transmission Date: 20190417
  Serious: Yes (Hospitalization, Other)
  Sender: FDA-Public Use
  Company Number: IT-BRISTOL-MYERS SQUIBB COMPANY-BMS-2019-003630

PATIENT
  Age: 91 Year
  Sex: Female

DRUGS (1)
  1. WARFARIN SODIUM. [Suspect]
     Active Substance: WARFARIN SODIUM
     Indication: ATRIAL FIBRILLATION
     Dosage: 1 DF, UNK
     Route: 048
     Dates: start: 20170515, end: 20171120

REACTIONS (6)
  - Aphasia [Recovering/Resolving]
  - Ecchymosis [Recovering/Resolving]
  - Haematoma [Recovering/Resolving]
  - Anaemia [Recovering/Resolving]
  - Poisoning [Recovering/Resolving]
  - Haemorrhage [Recovering/Resolving]

NARRATIVE: CASE EVENT DATE: 20181118
